FAERS Safety Report 7176009-4 (Version None)
Quarter: 2010Q4

REPORT INFORMATION
  Report Type: 
  Country: None (occurrence: None)
  Receive Date: 20101220
  Receipt Date: 20101209
  Transmission Date: 20110411
  Serious: Yes (Hospitalization)
  Sender: FDA-Public Use
  Company Number: US-BIOGENIDEC-2010BI029421

PATIENT
  Age: 63 Year
  Sex: Female

DRUGS (2)
  1. TYSABRI [Suspect]
     Indication: MULTIPLE SCLEROSIS
     Route: 042
     Dates: start: 20071127, end: 20100101
  2. TYSABRI [Suspect]
     Route: 042
     Dates: start: 20100523, end: 20100720

REACTIONS (4)
  - ARTHRALGIA [None]
  - BACK PAIN [None]
  - NERVE COMPRESSION [None]
  - PAIN IN EXTREMITY [None]
